FAERS Safety Report 25758077 (Version 1)
Quarter: 2025Q3

REPORT INFORMATION
  Report Type: Report from Study
  Country: CO (occurrence: CO)
  Receive Date: 20250903
  Receipt Date: 20250903
  Transmission Date: 20251020
  Serious: Yes (Other)
  Sender: ALEXION PHARMACEUTICALS
  Company Number: CO-AstraZeneca-CH-00941259A

PATIENT
  Age: 46 Year
  Sex: Female

DRUGS (1)
  1. LYNPARZA [Suspect]
     Active Substance: OLAPARIB
     Indication: Ovarian cancer
     Dosage: 300 MILLIGRAM, Q12H
     Dates: start: 20250604

REACTIONS (3)
  - Hepatic failure [Recovering/Resolving]
  - Hepatic function abnormal [Recovering/Resolving]
  - Hepatic lesion [Recovering/Resolving]

NARRATIVE: CASE EVENT DATE: 20250724
